FAERS Safety Report 6052203-0 (Version None)
Quarter: 2009Q1

REPORT INFORMATION
  Report Type: 
  Country: None (occurrence: None)
  Receive Date: 20090121
  Receipt Date: 20090108
  Transmission Date: 20090719
  Serious: Yes (Other)
  Sender: FDA-Public Use
  Company Number: 140302

PATIENT
  Age: 16 Year
  Sex: Male

DRUGS (1)
  1. ERYTHROMYCIN [Suspect]
     Indication: ACNE
     Dosage: 500 MG, TWICE DAILY, ORAL
     Route: 048
     Dates: start: 20071018, end: 20080101

REACTIONS (3)
  - MIGRAINE [None]
  - PHOTOPHOBIA [None]
  - TENSION HEADACHE [None]
